FAERS Safety Report 5546512-9 (Version None)
Quarter: 2007Q4

REPORT INFORMATION
  Report Type: 
  Country: None (occurrence: None)
  Receive Date: 20071123
  Receipt Date: 20061012
  Transmission Date: 20080405
  Serious: Yes (Other)
  Sender: FDA-Public Use
  Company Number: 31307

PATIENT
  Sex: Male

DRUGS (1)
  1. LEUCOVORIN CALCIUM [Suspect]
     Dosage: IV
     Route: 042
     Dates: start: 20060901

REACTIONS (3)
  - ANAPHYLACTIC REACTION [None]
  - CHILLS [None]
  - VOMITING [None]
